FAERS Safety Report 10489802 (Version 3)
Quarter: 2014Q4

REPORT INFORMATION
  Report Type: Spontaneous
  Country: JP (occurrence: JP)
  Receive Date: 20141002
  Receipt Date: 20141017
  Transmission Date: 20150528
  Serious: Yes (Other)
  Sender: FDA-Public Use
  Company Number: JP-PFIZER INC-2014271104

PATIENT
  Age: 31 Year
  Sex: Female

DRUGS (4)
  1. CEFAMEZIN [Suspect]
     Active Substance: CEFAZOLIN
     Dosage: 1 G, 2X/DAY
     Route: 041
     Dates: start: 20140922
  2. KEFRAL [Concomitant]
     Active Substance: CEFACLOR
     Dosage: UNK
     Dates: start: 20140908, end: 20140918
  3. UNASYN [Suspect]
     Active Substance: AMPICILLIN SODIUM\SULBACTAM SODIUM
     Dosage: 6 G, DAILY
     Dates: start: 20140919
  4. PLANOVAR [Suspect]
     Active Substance: ETHINYL ESTRADIOL\NORGESTREL
     Dosage: UNK

REACTIONS (3)
  - Drug eruption [Recovering/Resolving]
  - Anaphylactic reaction [Unknown]
  - Intentional product misuse [Unknown]

NARRATIVE: CASE EVENT DATE: 201409
